FAERS Safety Report 21390742 (Version 10)
Quarter: 2024Q1

REPORT INFORMATION
  Report Type: Spontaneous
  Country: US (occurrence: US)
  Receive Date: 20220929
  Receipt Date: 20240108
  Transmission Date: 20240410
  Serious: Yes (Other)
  Sender: FDA-Public Use
  Company Number: US-PFIZER INC-202201192665

PATIENT
  Age: 76 Year
  Sex: Female
  Weight: 53.832 kg

DRUGS (4)
  1. IBRANCE [Suspect]
     Active Substance: PALBOCICLIB
     Indication: Breast cancer female
     Dosage: UNK, CYCLIC (ONCE A DAY FOR THREE WEEKS AND THEN OFF A WEEK)
     Route: 048
  2. IBRANCE [Suspect]
     Active Substance: PALBOCICLIB
     Dosage: 100 MG, CYCLIC (DAILY, 21 DAYS, OFF 7)
     Route: 048
  3. IBRANCE [Suspect]
     Active Substance: PALBOCICLIB
     Dosage: 100 MG (REPORTED ML )ONCE A DAY OR 3 WEEK AND OFF 4TH WEEK
     Dates: start: 202206
  4. ANASTROZOLE [Concomitant]
     Active Substance: ANASTROZOLE
     Indication: Breast cancer female
     Dosage: 1 MG ONCE A DAY
     Dates: start: 202206

REACTIONS (5)
  - Lymphoid tissue operation [Unknown]
  - Full blood count decreased [Recovering/Resolving]
  - Neutrophil count decreased [Recovered/Resolved]
  - Vein disorder [Unknown]
  - Visual impairment [Unknown]
